FAERS Safety Report 13835656 (Version 2)
Quarter: 2017Q3

REPORT INFORMATION
  Report Type: Spontaneous
  Country: JP (occurrence: JP)
  Receive Date: 20170804
  Receipt Date: 20170818
  Transmission Date: 20171127
  Serious: Yes (Other)
  Sender: FDA-Public Use
  Company Number: JP-JNJFOC-20170803512

PATIENT
  Age: 79 Year
  Sex: Female

DRUGS (6)
  1. HALCION [Concomitant]
     Active Substance: TRIAZOLAM
     Route: 065
  2. FAMOTIDINE. [Concomitant]
     Active Substance: FAMOTIDINE
     Route: 065
  3. FLUITRAN [Concomitant]
     Active Substance: TRICHLORMETHIAZIDE
     Route: 065
  4. XARELTO [Suspect]
     Active Substance: RIVAROXABAN
     Indication: THERAPY CHANGE
     Route: 048
     Dates: start: 20170529, end: 20170612
  5. OLMETEC [Concomitant]
     Active Substance: OLMESARTAN MEDOXOMIL
     Route: 065
  6. NORVASC [Concomitant]
     Active Substance: AMLODIPINE BESYLATE
     Route: 065

REACTIONS (3)
  - Oral mucosa erosion [Not Recovered/Not Resolved]
  - Genital erosion [Not Recovered/Not Resolved]
  - Gastritis erosive [Not Recovered/Not Resolved]

NARRATIVE: CASE EVENT DATE: 20170608
